FAERS Safety Report 21491940 (Version 1)
Quarter: 2022Q4

REPORT INFORMATION
  Report Type: Spontaneous
  Country: US (occurrence: US)
  Receive Date: 20221021
  Receipt Date: 20221021
  Transmission Date: 20230112
  Serious: No
  Sender: FDA-Public Use
  Company Number: US-CIPLA LTD.-2022US00030

PATIENT
  Sex: Female

DRUGS (1)
  1. GABAPENTIN [Suspect]
     Active Substance: GABAPENTIN
     Indication: Product used for unknown indication
     Dosage: 300 MILLIGRAM, BID (TWICE AT NIGHT BEFORE BED)
     Route: 065

REACTIONS (5)
  - Dry mouth [Unknown]
  - Tinnitus [Unknown]
  - Tongue discolouration [Unknown]
  - Tongue disorder [Unknown]
  - Lip swelling [Unknown]
